FAERS Safety Report 25110246 (Version 3)
Quarter: 2025Q2

REPORT INFORMATION
  Report Type: Spontaneous
  Country: PT (occurrence: PT)
  Receive Date: 20250324
  Receipt Date: 20250625
  Transmission Date: 20250717
  Serious: Yes (Other)
  Sender: BRISTOL-MYERS SQUIBB COMPANY
  Company Number: None

PATIENT
  Age: 21 Year
  Sex: Male

DRUGS (2)
  1. NIVOLUMAB [Suspect]
     Active Substance: NIVOLUMAB
     Indication: Malignant melanoma
     Dosage: 1 MG/KG NIVOLUMAB (85MG) EVERY 21 DAYS.?STRENGTH: 10 MG/ML
     Route: 042
     Dates: start: 20250127
  2. IPILIMUMAB [Suspect]
     Active Substance: IPILIMUMAB
     Indication: Malignant melanoma
     Dosage: 3MG/KG IPILIMUMAB (255MG) EVERY 21 DAYS.?STRENGTH: 5 MG/ML
     Route: 042
     Dates: start: 20250127

REACTIONS (3)
  - Neutrophil count increased [Recovering/Resolving]
  - Leukocytosis [Recovering/Resolving]
  - Pyrexia [Not Recovered/Not Resolved]

NARRATIVE: CASE EVENT DATE: 20250227
